FAERS Safety Report 20860564 (Version 2)
Quarter: 2023Q2

REPORT INFORMATION
  Report Type: Spontaneous
  Country: US (occurrence: US)
  Receive Date: 20220523
  Receipt Date: 20230613
  Transmission Date: 20230721
  Serious: Yes (Hospitalization, Other)
  Sender: FDA-Public Use
  Company Number: US-CADILA HEALTHCARE LIMITED-US-ZYDUS-076680

PATIENT

DRUGS (3)
  1. BOSENTAN [Suspect]
     Active Substance: BOSENTAN
     Indication: Pulmonary arterial hypertension
     Dosage: , BID
     Route: 048
     Dates: start: 20200214
  2. ELIQUIS [Concomitant]
     Active Substance: APIXABAN
     Indication: Product used for unknown indication
     Dosage: UNK, UNK
     Route: 065
  3. OXYGEN [Concomitant]
     Active Substance: OXYGEN
     Indication: Product used for unknown indication
     Dosage: 10L/M
     Route: 065

REACTIONS (5)
  - Pulmonary hypertension [Unknown]
  - Hospice care [Not Recovered/Not Resolved]
  - Product dose omission issue [Recovered/Resolved]
  - Headache [Unknown]
  - Weight increased [Unknown]
